FAERS Safety Report 9204867 (Version 2)
Quarter: 2014Q2

REPORT INFORMATION
  Report Type: Spontaneous
  Country: FR (occurrence: FR)
  Receive Date: 20130402
  Receipt Date: 20140602
  Transmission Date: 20141212
  Serious: Yes (Death, Other)
  Sender: FDA-Public Use
  Company Number: FR-009507513-2012SP029479

PATIENT
  Age: 59 Year
  Sex: Male
  Weight: 82 kg

DRUGS (7)
  1. VICTRELIS [Suspect]
     Indication: HEPATITIS C
     Dosage: 750 MG, TID
     Dates: start: 20110302
  2. VICTRELIS [Suspect]
     Dosage: 800 MG, TID
     Route: 048
     Dates: start: 20110325
  3. VIRAFERONPEG [Suspect]
     Indication: HEPATITIS C
     Dosage: 150 ?G, QW
     Route: 058
     Dates: start: 20110302
  4. REBETOL [Suspect]
     Indication: HEPATITIS C
     Dosage: 1200 MG, QD
     Route: 048
     Dates: start: 20110302
  5. PREVISCAN [Concomitant]
     Indication: PHLEBITIS
     Dosage: 1 DF, QD
     Dates: start: 1992
  6. TOCO [Concomitant]
     Indication: INSULIN RESISTANCE
     Dosage: 500 MG, BID
     Dates: start: 20110228
  7. LIPANTHYL [Concomitant]
     Indication: HYPERCHOLESTEROLAEMIA
     Dosage: 160 MG, QD
     Dates: start: 2011

REACTIONS (4)
  - Multi-organ failure [Fatal]
  - Septic shock [Fatal]
  - Infection [Fatal]
  - Anaemia [Recovered/Resolved]
